FAERS Safety Report 6942378-0 (Version None)
Quarter: 2010Q3

REPORT INFORMATION
  Report Type: 
  Country: None (occurrence: None)
  Receive Date: 20100826
  Receipt Date: 20100812
  Transmission Date: 20110219
  Serious: Yes (Hospitalization, Other)
  Sender: FDA-Public Use
  Company Number: PHEH2006US10878

PATIENT
  Sex: Male

DRUGS (21)
  1. ZOMETA [Suspect]
  2. MELPHALAN [Concomitant]
  3. PREDNISONE [Concomitant]
  4. CYTOXAN [Concomitant]
  5. HYDROCHLOROTHIAZIDE [Concomitant]
  6. THALIDOMIDE [Concomitant]
  7. DEXAMETHASONE [Concomitant]
  8. NEURONTIN [Concomitant]
  9. CHANTIX [Concomitant]
  10. WELLBUTRIN SR [Concomitant]
     Dosage: 150MG, ONE TABLET TWICE DAILY
     Route: 048
  11. FLOMAX [Concomitant]
     Dosage: 0.4MG
     Dates: start: 20040920
  12. IBUPROFEN [Concomitant]
     Dosage: 800MG, TID
     Dates: start: 20040225
  13. LEXAPRO [Concomitant]
     Dosage: 10MG, ONECE DAILY
     Dates: start: 20040518
  14. LISINOPRIL AND HYDROCHLOROTHIAZIDE [Concomitant]
     Dosage: 12.5-20MG,
     Dates: start: 20040518
  15. NORVASC [Concomitant]
     Dosage: 10MG, DAILY
     Dates: start: 20040518
  16. OXYCODONE HCL [Concomitant]
     Dosage: 5MG,
     Dates: start: 20040527
  17. OXYCONTIN [Concomitant]
     Dosage: 20MG,
     Dates: start: 20040527
  18. EPOGEN [Concomitant]
  19. SENNA [Concomitant]
     Dosage: ONE TABLE SPOON, QD
     Route: 049
  20. PREVACID [Concomitant]
  21. COLACE [Concomitant]

REACTIONS (15)
  - ANAEMIA [None]
  - ANXIETY [None]
  - COMPRESSION FRACTURE [None]
  - DEPRESSION [None]
  - GASTROOESOPHAGEAL REFLUX DISEASE [None]
  - HYPOTENSION [None]
  - INJURY [None]
  - LUNG NEOPLASM [None]
  - OSTEOMYELITIS [None]
  - OSTEONECROSIS OF JAW [None]
  - PAIN [None]
  - POOR DENTAL CONDITION [None]
  - SPINAL COLUMN STENOSIS [None]
  - SPINAL CORPECTOMY [None]
  - URINARY RETENTION [None]
